FAERS Safety Report 11272090 (Version 1)
Quarter: 2015Q3

REPORT INFORMATION
  Report Type: Spontaneous
  Country: US (occurrence: None)
  Receive Date: 20150713
  Receipt Date: 20150713
  Transmission Date: 20151125
  Serious: No
  Sender: FDA-Public Use
  Company Number: None

PATIENT
  Age: 67 Year
  Sex: Male
  Weight: 99.79 kg

DRUGS (14)
  1. TRAMIDOL [Concomitant]
  2. 10/325 NORCO [Concomitant]
  3. MULTIPLE [Concomitant]
  4. POTASSIUM [Concomitant]
     Active Substance: POTASSIUM
  5. GLUCOSAMINE [Concomitant]
     Active Substance: GLUCOSAMINE
  6. FLAXSEED [Concomitant]
     Active Substance: FLAX SEED
  7. CALCIUM [Concomitant]
     Active Substance: CALCIUM
  8. COAL TAR MEDICATED SHAMPOO [Suspect]
     Active Substance: COAL TAR
     Indication: PRODUCT USED FOR UNKNOWN INDICATION
     Dosage: 15-20 YRS RECOMMENDATION AFTER VA?ONCE DAILY ?APPLIED TO A SURFACE USUALLY THE SKIN
     Route: 061
  9. MILK THISTLE [Concomitant]
     Active Substance: MILK THISTLE
  10. SAW PALMETTO [Concomitant]
     Active Substance: SAW PALMETTO
  11. CHRONDOITEN [Concomitant]
  12. C [Concomitant]
  13. E [Concomitant]
  14. FLOW MAX [Concomitant]

REACTIONS (1)
  - Vitiligo [None]

NARRATIVE: CASE EVENT DATE: 20150711
